FAERS Safety Report 7237670-9 (Version None)
Quarter: 2011Q1

REPORT INFORMATION
  Report Type: 
  Country: None (occurrence: None)
  Receive Date: 20110121
  Receipt Date: 20110112
  Transmission Date: 20110831
  Serious: No
  Sender: FDA-Public Use
  Company Number: US-B.I. PHARMACEUTICALS,INC./RIDGEFIELD-2011-BP-01134BP

PATIENT
  Sex: Female

DRUGS (5)
  1. REMIDEX [Concomitant]
     Indication: BREAST CANCER
  2. MULTAQ [Suspect]
     Indication: ATRIAL FIBRILLATION
  3. SYNTHROID [Concomitant]
     Indication: HYPOTHYROIDISM
  4. VERAPAMIL [Suspect]
     Indication: ATRIAL FIBRILLATION
  5. PRADAXA [Suspect]
     Indication: ATRIAL FIBRILLATION
     Dosage: 300 MG
     Route: 048
     Dates: start: 20101217

REACTIONS (3)
  - FATIGUE [None]
  - FREQUENT BOWEL MOVEMENTS [None]
  - HYPOTENSION [None]
